FAERS Safety Report 6140539-4 (Version None)
Quarter: 2009Q2

REPORT INFORMATION
  Report Type: 
  Country: None (occurrence: None)
  Receive Date: 20090402
  Receipt Date: 20090330
  Transmission Date: 20091009
  Serious: Yes (Hospitalization)
  Sender: FDA-Public Use
  Company Number: US-RB-013334-09

PATIENT
  Age: 13 Month
  Sex: Female

DRUGS (1)
  1. DEXTROMETHORPHAN [Suspect]
     Dosage: 3.2MG/KG

REACTIONS (2)
  - ACCIDENTAL DRUG INTAKE BY CHILD [None]
  - LETHARGY [None]
